FAERS Safety Report 23802058 (Version 1)
Quarter: 2024Q2

REPORT INFORMATION
  Report Type: Spontaneous
  Country: US (occurrence: US)
  Receive Date: 20240501
  Receipt Date: 20240501
  Transmission Date: 20240716
  Serious: No
  Sender: FDA-Public Use
  Company Number: US-ABBVIE-5739595

PATIENT
  Age: 58 Year
  Sex: Male

DRUGS (5)
  1. DALVANCE [Suspect]
     Active Substance: DALBAVANCIN
     Indication: Product used for unknown indication
     Dosage: FORM STRENGTH 500MG
     Route: 065
     Dates: start: 202404
  2. LISINOPRIL [Concomitant]
     Active Substance: LISINOPRIL
     Indication: Product used for unknown indication
  3. ROSUVASTATIN [Concomitant]
     Active Substance: ROSUVASTATIN
     Indication: Product used for unknown indication
  4. GLYBURIDE [Concomitant]
     Active Substance: GLYBURIDE
     Indication: Product used for unknown indication
  5. TRULICITY [Concomitant]
     Active Substance: DULAGLUTIDE
     Indication: Product used for unknown indication

REACTIONS (3)
  - Swelling [Recovering/Resolving]
  - Drug hypersensitivity [Recovering/Resolving]
  - Urticaria [Unknown]

NARRATIVE: CASE EVENT DATE: 20240401
